FAERS Safety Report 4448549-X (Version None)
Quarter: 2004Q3

REPORT INFORMATION
  Report Type: 
  Country: None (occurrence: None)
  Receive Date: 20040909
  Receipt Date: 20040819
  Transmission Date: 20050211
  Serious: Yes (Hospitalization)
  Sender: FDA-Public Use
  Company Number: FR_040504192

PATIENT
  Age: 67 Year
  Sex: Male

DRUGS (8)
  1. PEMETREXED [Suspect]
     Indication: PLEURAL MESOTHELIOMA MALIGNANT
     Dosage: 500 MG/M2/ 1 OTHER
     Route: 048
     Dates: start: 20040209
  2. CISPLATIN [Concomitant]
  3. VITAMIN B-12 [Concomitant]
  4. FOLIC ACID [Concomitant]
  5. DEXAMETHASONE [Concomitant]
  6. RANITIDINE HYDROCHLORIDE [Concomitant]
  7. KYTRIL [Concomitant]
  8. SOLU-MEDROL [Concomitant]

REACTIONS (10)
  - AGITATION [None]
  - BRAIN SCAN ABNORMAL [None]
  - CEREBRAL ATROPHY [None]
  - FALL [None]
  - FATIGUE [None]
  - ISCHAEMIC STROKE [None]
  - MALAISE [None]
  - PERICARDIAL EFFUSION [None]
  - PLEURAL EFFUSION [None]
  - TREMOR [None]
